FAERS Safety Report 15495401 (Version 1)
Quarter: 2018Q4

REPORT INFORMATION
  Report Type: Spontaneous
  Country: CA (occurrence: CA)
  Receive Date: 20181013
  Receipt Date: 20181013
  Transmission Date: 20190205
  Serious: Yes (Other)
  Sender: FDA-Public Use
  Company Number: CA-MACLEODS PHARMACEUTICALS US LTD-MAC2018017405

PATIENT

DRUGS (2)
  1. DONEPEZIL. [Suspect]
     Active Substance: DONEPEZIL
     Indication: GOUT
     Dosage: UNK
     Route: 065
  2. QUETIAPINE. [Suspect]
     Active Substance: QUETIAPINE
     Indication: GOUT
     Dosage: UNK, DOSE INCREASED 7 DAYS AGO
     Route: 065

REACTIONS (5)
  - Sedation complication [Unknown]
  - Unresponsive to stimuli [Unknown]
  - Muscle rigidity [Unknown]
  - Fall [Unknown]
  - Somnolence [Unknown]
